FAERS Safety Report 9583379 (Version 1)
Quarter: 2013Q4

REPORT INFORMATION
  Report Type: Spontaneous
  Country: US (occurrence: US)
  Receive Date: 20131002
  Receipt Date: 20131002
  Transmission Date: 20140711
  Serious: No
  Sender: FDA-Public Use
  Company Number: US-AMGEN-USASP2013046633

PATIENT
  Age: 60 Year
  Sex: Female
  Weight: 63.95 kg

DRUGS (8)
  1. ENBREL [Suspect]
     Indication: PRODUCT USED FOR UNKNOWN INDICATION
     Dosage: 50 MG, QWK
     Route: 058
  2. VITAMIN D                          /00107901/ [Concomitant]
     Dosage: 1000 UNIT, UNK
  3. TRAMADOL HCL [Concomitant]
     Dosage: 150 MG, UNK
  4. OSCAL 500 [Concomitant]
     Dosage: 200 D-3
  5. FOLGARD OS [Concomitant]
     Dosage: UNK
  6. LOTREL [Concomitant]
     Dosage: 10-20 MG
  7. VIVELLE DOT [Concomitant]
     Dosage: 0.025 MG, UNK
  8. RESTORIL                           /00054301/ [Concomitant]
     Dosage: 15 MG, UNK

REACTIONS (1)
  - Contusion [Unknown]
